FAERS Safety Report 8124333-0 (Version None)
Quarter: 2012Q1

REPORT INFORMATION
  Report Type: 
  Country: None (occurrence: None)
  Receive Date: 20120209
  Receipt Date: 20120131
  Transmission Date: 20120608
  Serious: Yes (Hospitalization, Other)
  Sender: FDA-Public Use
  Company Number: CA-JNJFOC-20111105119

PATIENT
  Sex: Male
  Weight: 101 kg

DRUGS (6)
  1. REMICADE [Suspect]
     Indication: ANKYLOSING SPONDYLITIS
     Route: 042
     Dates: start: 20060619
  2. CALCIUM [Concomitant]
  3. NAPROXEN [Concomitant]
     Route: 065
  4. REMICADE [Suspect]
     Dosage: 46TH INFUSION
     Route: 042
     Dates: start: 20111222
  5. GABAPENTIN [Concomitant]
     Route: 065
  6. ACETAMINOPHEN [Concomitant]
     Route: 065

REACTIONS (1)
  - NASAL SEPTAL OPERATION [None]
